FAERS Safety Report 4521815-5 (Version None)
Quarter: 2004Q4

REPORT INFORMATION
  Report Type: 
  Country: None (occurrence: None)
  Receive Date: 20041207
  Receipt Date: 20041201
  Transmission Date: 20050328
  Serious: Yes (Other)
  Sender: FDA-Public Use
  Company Number: S04-USA-07427-01

PATIENT
  Age: 77 Year
  Sex: Male

DRUGS (3)
  1. NAMENDA [Suspect]
     Indication: DEMENTIA
     Dosage: 5 MG QD PO
     Route: 048
     Dates: start: 20041101
  2. ASPIRIN [Suspect]
     Dosage: 81 MG QD
     Dates: end: 20041115
  3. VITAMIN E [Suspect]
     Dosage: 800 IU TID
     Dates: end: 20041115

REACTIONS (2)
  - GASTROINTESTINAL HAEMORRHAGE [None]
  - HAEMATEMESIS [None]
